FAERS Safety Report 23694105 (Version 3)
Quarter: 2024Q4

REPORT INFORMATION
  Report Type: Report from Study
  Country: CA (occurrence: CA)
  Receive Date: 20240401
  Receipt Date: 20241114
  Transmission Date: 20250114
  Serious: Yes (Death, Other)
  Sender: VERITY PHARMACEUTICALS INC.
  Company Number: CA-VER-202400240

PATIENT
  Age: 71 Year
  Sex: Male

DRUGS (8)
  1. TRELSTAR [Suspect]
     Active Substance: TRIPTORELIN PAMOATE
     Indication: Prostate cancer
     Dosage: START DATE: 08-JUN-24??1.25 MILLIGRAM(S), 1 IN 3 MONTH, POWDER FOR PROLONGED-RELEASE SUSPENSION FOR
     Route: 030
     Dates: end: 20240608
  2. TRELSTAR [Suspect]
     Active Substance: TRIPTORELIN PAMOATE
     Indication: Prostate cancer
     Dosage: 11.25 MILLIGRAM(S), 1 IN 3 MONTH, POWDER FOR PROLONGED-RELEASE SUSPENSION FOR INJECT
     Route: 030
     Dates: start: 20230331, end: 20230331
  3. TRELSTAR [Suspect]
     Active Substance: TRIPTORELIN PAMOATE
     Indication: Prostate cancer
     Dosage: 11.25 MILLIGRAM(S), 1 IN 3 MONTH, POWDER FOR PROLONGED-RELEASE SUSPENSION FOR INJECT
     Route: 030
     Dates: start: 20230629, end: 20230629
  4. TRELSTAR [Suspect]
     Active Substance: TRIPTORELIN PAMOATE
     Indication: Prostate cancer
     Dosage: 11.25 MILLIGRAM(S), 1 IN 3 MONTH, POWDER FOR PROLONGED-RELEASE SUSPENSION FOR INJECT
     Route: 030
     Dates: start: 20230928, end: 20230928
  5. TRELSTAR [Suspect]
     Active Substance: TRIPTORELIN PAMOATE
     Indication: Prostate cancer
     Dosage: START DATE: 04-JAN-24??11.25 MILLIGRAM(S), 1 IN 3 MONTH, POWDER FOR PROLONGED-RELEASE SUSPENSION FOR
     Route: 030
     Dates: end: 20240104
  6. TRELSTAR [Suspect]
     Active Substance: TRIPTORELIN PAMOATE
     Indication: Prostate cancer
     Dosage: START DATE: 23-MAR-24??11.25 MILLIGRAM(S), 1 IN 3 MONTH, POWDER FOR PROLONGED-RELEASE SUSPENSION FOR
     Route: 030
     Dates: end: 20240323
  7. UNSPECIFIED INGREDIENT [Concomitant]
     Active Substance: UNSPECIFIED INGREDIENT
     Indication: Product used for unknown indication
     Route: 065
  8. UNSPECIFIED INGREDIENT [Concomitant]
     Active Substance: UNSPECIFIED INGREDIENT
     Indication: Product used for unknown indication
     Route: 065

REACTIONS (7)
  - Arthralgia [Not Recovered/Not Resolved]
  - Back pain [Not Recovered/Not Resolved]
  - Inappropriate schedule of product administration [Recovered/Resolved]
  - Pain [Not Recovered/Not Resolved]
  - Death [Fatal]
  - Flank pain [Not Recovered/Not Resolved]
  - Malaise [Not Recovered/Not Resolved]

NARRATIVE: CASE EVENT DATE: 20230928
